FAERS Safety Report 8657786 (Version 4)
Quarter: 2013Q1

REPORT INFORMATION
  Report Type: Report from Study
  Country: JP (occurrence: JP)
  Receive Date: 20120710
  Receipt Date: 20130118
  Transmission Date: 20140127
  Serious: No
  Sender: FDA-Public Use
  Company Number: JP-VERTEX PHARMACEUTICALS INC.-AE-2012-009784

PATIENT
  Age: 49 Year
  Sex: Female

DRUGS (24)
  1. VX-950 (TELAPREVIR) [Suspect]
     Indication: CHRONIC HEPATITIS C
     Dosage: 2250 MG, QD
     Route: 048
     Dates: start: 20120508, end: 20120511
  2. VX-950 (TELAPREVIR) [Suspect]
     Dosage: 1500 MG, QD
     Route: 048
     Dates: start: 20120512, end: 20120731
  3. REBETOL [Suspect]
     Indication: CHRONIC HEPATITIS C
     Dosage: 800 MG, QD
     Route: 048
     Dates: start: 20120508, end: 20120511
  4. REBETOL [Suspect]
     Dosage: 600 MG, QD
     Route: 048
     Dates: start: 20120512, end: 20120517
  5. REBETOL [Suspect]
     Dosage: 400 MG, QD
     Route: 048
     Dates: start: 20120518, end: 20120522
  6. REBETOL [Suspect]
     Dosage: 200 MG, QD
     Route: 048
     Dates: start: 20120523, end: 20120613
  7. REBETOL [Suspect]
     Dosage: 400MG AND 200MG QOD
     Route: 048
     Dates: start: 20120614, end: 20120626
  8. REBETOL [Suspect]
     Dosage: 400 MG, QD
     Route: 048
     Dates: start: 20120627, end: 20120829
  9. REBETOL [Suspect]
     Dosage: 600 MG, QD
     Route: 048
     Dates: start: 20120830
  10. PEGINTRON [Suspect]
     Indication: CHRONIC HEPATITIS C
     Route: 058
     Dates: start: 20120508, end: 20120516
  11. PEGINTRON [Suspect]
     Dosage: 0.75 ?G/KG, UNK
     Route: 058
     Dates: start: 20120523, end: 20120523
  12. PEGINTRON [Suspect]
     Dosage: 60 ?G/BODY/QW
     Route: 058
     Dates: start: 20120530, end: 20120704
  13. PEGINTRON [Suspect]
     Dosage: 80 ?G/BODY/QW
     Route: 058
     Dates: start: 20120611
  14. MAGMITT [Concomitant]
     Dosage: 990 MG, QD
     Route: 048
     Dates: start: 20120426
  15. MAGMITT [Concomitant]
     Dosage: 3 DF, UNK
     Route: 048
     Dates: end: 20120829
  16. AMOBAN [Concomitant]
     Dosage: 1 DF, PRN
     Route: 048
     Dates: start: 20120508
  17. AMOBAN [Concomitant]
     Dosage: 1 DF, QD
     Route: 048
     Dates: start: 20120514
  18. ADJUST A [Concomitant]
     Dosage: 2 DF, PRN
     Route: 048
     Dates: start: 20120518, end: 20120521
  19. KENALOG [Concomitant]
     Route: 049
     Dates: start: 20120613
  20. OMEPRAL [Concomitant]
     Dosage: 10 MG, QD
     Route: 048
     Dates: start: 20120112
  21. OMEPRAL [Concomitant]
     Dosage: 1 DF, QD
     Route: 048
     Dates: end: 20121017
  22. MOHRUS [Concomitant]
     Dosage: 1 DF, QD
     Route: 061
     Dates: start: 20120718
  23. MAGNESIUM OXIDE [Concomitant]
     Dosage: 2 G, QD
     Route: 048
     Dates: start: 20120830
  24. NEXIUM [Concomitant]
     Dosage: 1 DF, QD
     Route: 048
     Dates: start: 20121018

REACTIONS (1)
  - Neutrophil count decreased [Recovered/Resolved]
